FAERS Safety Report 8226661-7 (Version None)
Quarter: 2012Q1

REPORT INFORMATION
  Report Type: 
  Country: None (occurrence: None)
  Receive Date: 20120322
  Receipt Date: 20120315
  Transmission Date: 20120608
  Serious: Yes (Other)
  Sender: FDA-Public Use
  Company Number: IN-GE HEALTHCARE MEDICAL DIAGNOSTICS-OMPQ-NO-1203S-0324

PATIENT
  Sex: Female
  Weight: 70 kg

DRUGS (1)
  1. OMNIPAQUE 140 [Suspect]
     Indication: CORONARY ARTERY DISEASE
     Route: 013
     Dates: start: 20120306, end: 20120306

REACTIONS (1)
  - LOSS OF CONSCIOUSNESS [None]
